FAERS Safety Report 24000990 (Version 1)
Quarter: 2024Q2

REPORT INFORMATION
  Report Type: Spontaneous
  Country: US (occurrence: None)
  Receive Date: 20240621
  Receipt Date: 20240621
  Transmission Date: 20240716
  Serious: Yes (Other)
  Sender: FDA-Public Use
  Company Number: None

PATIENT
  Age: 36 Year
  Sex: Female

DRUGS (1)
  1. SPRAVATO [Suspect]
     Active Substance: ESKETAMINE
     Indication: Major depression
     Dosage: FREQ: TO BE ADMINISTERED IN PRESCRIBERS OFFICE 56 MG INTRANASALL Y TWICE WEEKLY ?
     Route: 050
     Dates: start: 20240529

REACTIONS (2)
  - Major depression [None]
  - Suicide attempt [None]

NARRATIVE: CASE EVENT DATE: 20240601
